FAERS Safety Report 4491675-X (Version None)
Quarter: 2004Q4

REPORT INFORMATION
  Report Type: 
  Country: None (occurrence: None)
  Receive Date: 20041103
  Receipt Date: 20041013
  Transmission Date: 20050328
  Serious: Yes (Other)
  Sender: FDA-Public Use
  Company Number: PHEH2004US11024

PATIENT
  Age: 76 Year
  Sex: Female

DRUGS (5)
  1. LAMISIL [Suspect]
     Indication: CANDIDIASIS
     Dosage: 250 MG, ONCE/SINGLE
     Route: 048
     Dates: start: 20040811, end: 20040811
  2. ZOCOR [Concomitant]
     Dosage: 80 MG, QD
     Route: 048
  3. NABUMETONE [Concomitant]
     Dosage: 500 MG, QD
     Route: 048
  4. LISINOPRIL AND HYDROCHLOROTHIAZIDE [Concomitant]
     Route: 048
  5. PHENYTOIN [Concomitant]
     Dosage: 100 MG, QD
     Route: 048

REACTIONS (3)
  - BLOOD PRESSURE INCREASED [None]
  - DIZZINESS [None]
  - HEADACHE [None]
